FAERS Safety Report 6427002-8 (Version None)
Quarter: 2009Q4

REPORT INFORMATION
  Report Type: 
  Country: None (occurrence: None)
  Receive Date: 20091104
  Receipt Date: 20091102
  Transmission Date: 20100525
  Serious: Yes (Hospitalization, Disabling, Other)
  Sender: FDA-Public Use
  Company Number: US-MERCK-0910USA02796

PATIENT
  Age: 67 Year
  Sex: Male
  Weight: 90 kg

DRUGS (16)
  1. JANUVIA [Suspect]
     Indication: DIABETES MELLITUS INADEQUATE CONTROL
     Route: 048
     Dates: start: 20070101, end: 20090919
  2. GLIPIZIDE [Concomitant]
     Route: 065
  3. ACTOS [Concomitant]
     Route: 065
  4. ADVAIR DISKUS 100/50 [Concomitant]
     Route: 065
  5. HYDROCHLOROTHIAZIDE [Concomitant]
     Route: 065
  6. PRILOSEC [Concomitant]
     Route: 065
  7. DILTIAZEM HCL [Concomitant]
     Route: 065
  8. ACCUPRIL [Concomitant]
     Route: 065
  9. METFORMIN [Concomitant]
     Route: 065
  10. PRAVACHOL [Concomitant]
     Route: 065
  11. NIASPAN ER [Concomitant]
     Route: 065
  12. IMDUR [Concomitant]
     Route: 065
  13. NITROSTAT [Concomitant]
     Route: 065
  14. NASONEX [Concomitant]
     Route: 065
  15. ASPIRIN [Concomitant]
     Route: 065
  16. AVAPRO [Concomitant]
     Route: 065

REACTIONS (11)
  - ABDOMINAL PAIN [None]
  - ANAEMIA [None]
  - ATELECTASIS [None]
  - ATRIAL FIBRILLATION [None]
  - DIARRHOEA [None]
  - GASTRITIS ATROPHIC [None]
  - HYPOCALCAEMIA [None]
  - HYPOXIA [None]
  - LEUKOCYTOSIS [None]
  - PANCREATITIS [None]
  - RENAL FAILURE ACUTE [None]
